FAERS Safety Report 20698766 (Version 1)
Quarter: 2022Q2

REPORT INFORMATION
  Report Type: Spontaneous
  Country: US (occurrence: US)
  Receive Date: 20220412
  Receipt Date: 20220412
  Transmission Date: 20220721
  Serious: No
  Sender: FDA-Public Use
  Company Number: US-BION-009697

PATIENT
  Age: 83 Year
  Sex: Female

DRUGS (8)
  1. ALEVE [Suspect]
     Active Substance: NAPROXEN SODIUM
     Indication: Pain
     Dosage: 1 DAILY
     Route: 048
  2. FIBER [Concomitant]
     Active Substance: PSYLLIUM HUSK
  3. HERBALS\TURMERIC [Concomitant]
     Active Substance: HERBALS\TURMERIC
  4. OMEGA COMBINATION [Concomitant]
     Dosage: OMEGA 369
  5. Cop10 [Concomitant]
  6. LECITHIN [Concomitant]
     Active Substance: LECITHIN
  7. VITAMIN D3 [Concomitant]
     Active Substance: CHOLECALCIFEROL
  8. ZINC [Concomitant]
     Active Substance: ZINC

REACTIONS (1)
  - Somnolence [Unknown]
